FAERS Safety Report 13204820 (Version 1)
Quarter: 2017Q1

REPORT INFORMATION
  Report Type: Spontaneous
  Country: US (occurrence: US)
  Receive Date: 20170208
  Receipt Date: 20170208
  Transmission Date: 20170428
  Serious: Yes (Hospitalization, Other)
  Sender: FDA-Public Use
  Company Number: None

PATIENT
  Age: 24 Year
  Sex: Male
  Weight: 76.2 kg

DRUGS (11)
  1. VITAMIN B6 COMPLEX [Concomitant]
  2. HYPE BLACKSTONE [Concomitant]
  3. SEROQUEL [Suspect]
     Active Substance: QUETIAPINE FUMARATE
     Indication: ATTENTION DEFICIT/HYPERACTIVITY DISORDER
     Dates: start: 20070310
  4. MARK WAHLBERG PROTEIN PACKS [Concomitant]
  5. LITHIUM. [Suspect]
     Active Substance: LITHIUM
  6. SEROQUEL [Suspect]
     Active Substance: QUETIAPINE FUMARATE
     Indication: POST-TRAUMATIC STRESS DISORDER
     Dates: start: 20070310
  7. SEROQUEL [Suspect]
     Active Substance: QUETIAPINE FUMARATE
     Indication: SCHIZOPHRENIA
     Dates: start: 20070310
  8. SEROQUEL [Suspect]
     Active Substance: QUETIAPINE FUMARATE
     Indication: BIPOLAR DISORDER
     Dates: start: 20070310
  9. SEROQUEL [Suspect]
     Active Substance: QUETIAPINE FUMARATE
     Indication: PANIC ATTACK
     Dates: start: 20070310
  10. SEROQUEL [Suspect]
     Active Substance: QUETIAPINE FUMARATE
     Indication: DEPRESSION
     Dates: start: 20070310
  11. ANGEL DUST [Concomitant]

REACTIONS (6)
  - Amnesia [None]
  - Ocular discomfort [None]
  - Drug abuse [None]
  - Loss of consciousness [None]
  - Alcohol use [None]
  - Legal problem [None]

NARRATIVE: CASE EVENT DATE: 20170131
